FAERS Safety Report 19757897 (Version 1)
Quarter: 2021Q3

REPORT INFORMATION
  Report Type: Report from Study
  Country: US (occurrence: US)
  Receive Date: 20210828
  Receipt Date: 20210828
  Transmission Date: 20211014
  Serious: Yes (Other)
  Sender: FDA-Public Use
  Company Number: US-SHIRE-US202022575

PATIENT
  Sex: Female

DRUGS (1)
  1. HUMAN NORMAL IMMUNOGLOBULIN; LIQUID [Suspect]
     Active Substance: HUMAN IMMUNOGLOBULIN G
     Indication: IMMUNODEFICIENCY COMMON VARIABLE
     Dosage: UNK
     Route: 042

REACTIONS (6)
  - Deep vein thrombosis [Unknown]
  - Meniscus injury [Unknown]
  - Lichen planus [Unknown]
  - Migraine [Unknown]
  - Autoimmune thyroiditis [Unknown]
  - Rheumatoid arthritis [Unknown]
